FAERS Safety Report 4689553-6 (Version None)
Quarter: 2005Q2

REPORT INFORMATION
  Report Type: 
  Country: None (occurrence: None)
  Receive Date: 20050608
  Receipt Date: 20050209
  Transmission Date: 20051028
  Serious: No
  Sender: FDA-Public Use
  Company Number: 2005-BP-02104BP

PATIENT
  Age: 61 Year
  Sex: Male

DRUGS (13)
  1. SPIRIVA [Suspect]
     Indication: ASBESTOSIS
     Dosage: 18 MCG (18 MCG, QD), IH
     Route: 055
     Dates: start: 20040801
  2. SPIRIVA [Suspect]
     Indication: CHRONIC OBSTRUCTIVE PULMONARY DISEASE
     Dosage: 18 MCG (18 MCG, QD), IH
     Route: 055
     Dates: start: 20040801
  3. SPIRIVA [Suspect]
     Indication: ASTHMA
  4. SPIRIVA [Suspect]
     Indication: BRONCHITIS CHRONIC
  5. PREVACID [Concomitant]
  6. CARDIZEM [Concomitant]
  7. VITAMINS [Concomitant]
  8. ACCOLATE [Concomitant]
  9. FISH OIL [Concomitant]
  10. COENZYME Q10 [Concomitant]
  11. VITAMIN C (ASORBIC ACID) [Concomitant]
  12. CHONDROITIN [Concomitant]
  13. MAXAIR [Concomitant]

REACTIONS (4)
  - DYSPHAGIA [None]
  - LOCAL SWELLING [None]
  - NASOPHARYNGITIS [None]
  - THROAT IRRITATION [None]
